FAERS Safety Report 5798804-6 (Version None)
Quarter: 2008Q2

REPORT INFORMATION
  Report Type: 
  Country: None (occurrence: None)
  Receive Date: 20080620
  Receipt Date: 20080404
  Transmission Date: 20081010
  Serious: Yes (Other)
  Sender: FDA-Public Use
  Company Number: PHEH2008US03548

PATIENT
  Sex: Male

DRUGS (1)
  1. FOCALIN XR [Suspect]

REACTIONS (2)
  - ANXIETY [None]
  - STOMACH DISCOMFORT [None]
